FAERS Safety Report 10249335 (Version 2)
Quarter: 2016Q1

REPORT INFORMATION
  Report Type: Report from Study
  Country: CA (occurrence: CA)
  Receive Date: 20140620
  Receipt Date: 20160224
  Transmission Date: 20160525
  Serious: Yes (Hospitalization, Other)
  Sender: FDA-Public Use
  Company Number: CA-PFIZER INC-2014164550

PATIENT
  Age: 58 Year
  Sex: Female

DRUGS (19)
  1. RAPAMUNE [Suspect]
     Active Substance: SIROLIMUS
     Dosage: UNK
     Route: 048
     Dates: start: 20130903
  2. LEFLUNOMIDE. [Concomitant]
     Active Substance: LEFLUNOMIDE
     Dosage: UNK
     Dates: start: 20130503, end: 20130908
  3. RAMIPRIL. [Concomitant]
     Active Substance: RAMIPRIL
  4. RAPAMUNE [Suspect]
     Active Substance: SIROLIMUS
     Indication: IMMUNOSUPPRESSION
     Dosage: 1 MG, ONCE DAILY
     Route: 048
     Dates: start: 20130531, end: 20130824
  5. PREDNISONE. [Concomitant]
     Active Substance: PREDNISONE
     Dosage: UNK
     Dates: start: 20101207
  6. FORZA-10 [Concomitant]
  7. ATORVASTATIN [Concomitant]
     Active Substance: ATORVASTATIN
  8. PANTOPRAZOLE [Concomitant]
     Active Substance: PANTOPRAZOLE SODIUM
  9. IMODIUM [Concomitant]
     Active Substance: LOPERAMIDE HYDROCHLORIDE
  10. CIPRO [Concomitant]
     Active Substance: CIPROFLOXACIN HYDROCHLORIDE
     Dosage: UNK
     Dates: start: 20130814, end: 20130816
  11. VITAMIN D [Concomitant]
     Active Substance: CHOLECALCIFEROL
  12. FK506E(MR4) [Suspect]
     Active Substance: TACROLIMUS
     Indication: RENAL TRANSPLANT
     Dosage: FORMULATION: MODIFIED-RELEASE CAPSULE, HARD
     Route: 065
     Dates: start: 20101204, end: 20130530
  13. FERROUS SULFATE [Concomitant]
     Active Substance: FERROUS SULFATE\FERROUS SULFATE, DRIED
  14. GLYBURIDE. [Concomitant]
     Active Substance: GLYBURIDE
  15. FK506E(MR4) [Suspect]
     Active Substance: TACROLIMUS
     Dosage: FORMULATION: MODIFIED-RELEASE CAPSULE, HARD; 1 MG, ONCE DAILY
     Route: 048
     Dates: start: 20130829, end: 20130831
  16. METOPROLOL. [Concomitant]
     Active Substance: METOPROLOL
  17. FK506E(MR4) [Suspect]
     Active Substance: TACROLIMUS
     Indication: IMMUNOSUPPRESSION
     Dosage: FORMULATION: MODIFIED-RELEASE CAPSULE, HARD; 4 MG, ONCE DAILY
     Route: 048
     Dates: start: 20130825, end: 20130828
  18. MAGNESIUM OXIDE. [Concomitant]
     Active Substance: MAGNESIUM OXIDE
  19. COUMADIN [Concomitant]
     Active Substance: WARFARIN SODIUM

REACTIONS (3)
  - Atrial fibrillation [Recovered/Resolved with Sequelae]
  - Pyrexia [Recovered/Resolved]
  - Pneumocystis jirovecii pneumonia [Recovered/Resolved]

NARRATIVE: CASE EVENT DATE: 20130817
